FAERS Safety Report 6149182-4 (Version None)
Quarter: 2009Q2

REPORT INFORMATION
  Report Type: 
  Country: None (occurrence: None)
  Receive Date: 20090407
  Receipt Date: 20090323
  Transmission Date: 20091009
  Serious: Yes (Hospitalization)
  Sender: FDA-Public Use
  Company Number: 233205K09USA

PATIENT
  Age: 44 Year
  Sex: Female
  Weight: 100 kg

DRUGS (6)
  1. REBIF [Suspect]
     Indication: MULTIPLE SCLEROSIS
     Dosage: 44 MCG, 3 IN 1 WEEKS, SUBCUTANEOUS
     Route: 058
     Dates: start: 20050427
  2. VITAMIN B12 [Concomitant]
  3. IRON (IRON) [Concomitant]
  4. BENADRYL [Concomitant]
  5. PAXIL [Concomitant]
  6. OTHER UNSPECIFIED MEDIDCATIONS (ALL OTHER THERAPEUTIC PRODUCTS) [Concomitant]

REACTIONS (4)
  - CHEST DISCOMFORT [None]
  - DIARRHOEA [None]
  - DYSPEPSIA [None]
  - VOMITING [None]
